FAERS Safety Report 15639305 (Version 2)
Quarter: 2019Q3

REPORT INFORMATION
  Report Type: Spontaneous
  Country: CA (occurrence: CA)
  Receive Date: 20181120
  Receipt Date: 20190711
  Transmission Date: 20191004
  Serious: Yes (Death)
  Sender: FDA-Public Use
  Company Number: CA-PFIZER INC-2018475672

PATIENT
  Age: 59 Year
  Weight: 51 kg

DRUGS (2)
  1. VENLAFAXINE HCL [Suspect]
     Active Substance: VENLAFAXINE HYDROCHLORIDE
     Dosage: UNK
  2. MORPHINE SULFATE. [Suspect]
     Active Substance: MORPHINE SULFATE
     Dosage: UNK

REACTIONS (4)
  - Postmortem blood drug level increased [Fatal]
  - Opiates positive [Fatal]
  - Toxicologic test abnormal [Fatal]
  - Overdose [Fatal]
